FAERS Safety Report 10011800 (Version 5)
Quarter: 2015Q3

REPORT INFORMATION
  Report Type: Report from Study
  Country: US (occurrence: US)
  Receive Date: 20140314
  Receipt Date: 20150701
  Transmission Date: 20151125
  Serious: Yes (Other)
  Sender: FDA-Public Use
  Company Number: US-UCBSA-114486

PATIENT
  Age: 23 Year
  Sex: Female
  Weight: 77 kg

DRUGS (20)
  1. CERTOLIZUMAB PEGOL CD [Suspect]
     Active Substance: CERTOLIZUMAB PEGOL
     Indication: CROHN^S DISEASE
     Dosage: 400 MG, EV 2 WEEKS(QOW)
     Route: 058
     Dates: start: 20111129, end: 20120221
  2. CERTOLIZUMAB PEGOL CD [Suspect]
     Active Substance: CERTOLIZUMAB PEGOL
     Dosage: 200 MG
     Route: 058
     Dates: start: 20120313, end: 201409
  3. BETAMETHASONE. [Concomitant]
     Active Substance: BETAMETHASONE
     Indication: PSORIASIS
     Dosage: UNK, 2X/DAY (BID)
  4. TYLENOL [Concomitant]
     Active Substance: ACETAMINOPHEN
     Indication: INSOMNIA
     Dosage: 1-2 TABLETS WHEN NEEDED
     Route: 048
     Dates: start: 2012
  5. LEVOTHYROXINE. [Concomitant]
     Active Substance: LEVOTHYROXINE
     Indication: HYPOTHYROIDISM
     Dosage: UNK, DAILY DOSE: 75 MICROGRAM
     Route: 048
  6. FLUCONAZOLE. [Concomitant]
     Active Substance: FLUCONAZOLE
     Indication: VULVOVAGINAL MYCOTIC INFECTION
     Dosage: 1 DAILY FOR 3 DAYS AND THEN 1 TABLET WEEKLY
     Dates: start: 2014
  7. CLINDAMYCIN PHOSPHATE. [Concomitant]
     Active Substance: CLINDAMYCIN PHOSPHATE
     Indication: FOLLICULITIS
     Dosage: UNK, AS NEEDED (PRN)
     Route: 061
  8. PROMETHAZINE [Concomitant]
     Active Substance: PROMETHAZINE\PROMETHAZINE HYDROCHLORIDE
     Indication: NAUSEA
     Dosage: 25 MG, EVERY 4 HOURS, AS NEEDED (PRN)
     Route: 048
  9. PROMETHAZINE [Concomitant]
     Active Substance: PROMETHAZINE\PROMETHAZINE HYDROCHLORIDE
     Indication: VOMITING
  10. BROMOCRIPTINE [Concomitant]
     Active Substance: BROMOCRIPTINE
     Indication: INFERTILITY
     Dosage: UNK, ONCE DAILY (QD), 2.5 MG TABLET, ONE HALF TABLE DAILY
     Route: 048
     Dates: start: 2013
  11. CALCIPOTRIENE. [Concomitant]
     Active Substance: CALCIPOTRIENE
     Indication: PSORIASIS
     Dosage: UNK, 2X/DAY (BID)
  12. DOXEPIN [Concomitant]
     Active Substance: DOXEPIN
     Indication: PRURITUS
  13. NYSTATIN. [Concomitant]
     Active Substance: NYSTATIN
     Indication: FUNGAL INFECTION
     Dosage: 500000 MILLION IU, 2X/DAY (BID)
  14. MUPIROCIN. [Concomitant]
     Active Substance: MUPIROCIN
     Indication: PSORIASIS
     Dosage: 2%, 2X/DAY (BID)
  15. CITALOPRAM [Concomitant]
     Active Substance: CITALOPRAM HYDROBROMIDE
     Indication: DEPRESSION
     Dosage: DAILY: 20 MG
     Route: 048
  16. FERREX [Concomitant]
     Indication: IRON DEFICIENCY ANAEMIA
     Dosage: 150MG 2 CAPSULES
  17. BUDESONIDE. [Concomitant]
     Active Substance: BUDESONIDE
     Indication: CROHN^S DISEASE
     Dosage: UNK
     Dates: start: 20140304, end: 2014
  18. PRENATAL VITAMIN [Concomitant]
     Active Substance: VITAMINS
     Indication: NUTRITIONAL SUPPLEMENTATION
     Dosage: UNK UNK, ONCE DAILY (QD)
     Route: 048
     Dates: start: 201205
  19. FAMOTIDINE. [Concomitant]
     Active Substance: FAMOTIDINE
     Indication: DYSPEPSIA
     Dosage: UNK, DOSE: 20 MG
     Route: 048
  20. HYDROXYZINE [Concomitant]
     Active Substance: HYDROXYZINE\HYDROXYZINE HYDROCHLORIDE
     Indication: PRURITUS
     Dosage: 25 - 50MG DAILY
     Route: 048
     Dates: start: 2014

REACTIONS (2)
  - Genital infection fungal [Recovered/Resolved]
  - Vulvovaginal candidiasis [Unknown]

NARRATIVE: CASE EVENT DATE: 201401
